FAERS Safety Report 22207507 (Version 2)
Quarter: 2023Q2

REPORT INFORMATION
  Report Type: Spontaneous
  Country: JP (occurrence: JP)
  Receive Date: 20230413
  Receipt Date: 20230427
  Transmission Date: 20230722
  Serious: Yes (Death)
  Sender: FDA-Public Use
  Company Number: JP-ABBVIE-4726868

PATIENT
  Age: 70 Year
  Sex: Female

DRUGS (2)
  1. VENCLEXTA [Suspect]
     Active Substance: VENETOCLAX
     Indication: B-cell small lymphocytic lymphoma
     Dosage: FORM STRENGTH: 10 MILLIGRAM
     Route: 048
     Dates: start: 20230405, end: 20230407
  2. FLUCONAZOLE [Concomitant]
     Active Substance: FLUCONAZOLE
     Indication: Infection prophylaxis
     Route: 048
     Dates: start: 20230405

REACTIONS (1)
  - B-cell small lymphocytic lymphoma [Fatal]
